FAERS Safety Report 17963925 (Version 1)
Quarter: 2020Q2

REPORT INFORMATION
  Report Type: Spontaneous
  Country: CA (occurrence: CA)
  Receive Date: 20200630
  Receipt Date: 20200630
  Transmission Date: 20200714
  Serious: Yes (Hospitalization)
  Sender: FDA-Public Use
  Company Number: CA-PFIZER INC-2020248153

PATIENT
  Age: 66 Year
  Sex: Male

DRUGS (14)
  1. IRINOTECAN HCL [Suspect]
     Active Substance: IRINOTECAN HYDROCHLORIDE
     Indication: COLON CANCER
     Dosage: 300 MG
     Route: 042
  2. APIXABAN [Concomitant]
     Active Substance: APIXABAN
  3. AMLODIPINE [Concomitant]
     Active Substance: AMLODIPINE BESYLATE
  4. FLUOROURACIL. [Suspect]
     Active Substance: FLUOROURACIL
     Indication: COLON CANCER
     Dosage: UNK
     Route: 042
  5. CANDESARTAN. [Concomitant]
     Active Substance: CANDESARTAN
  6. FERROUS FUMARATE [Concomitant]
     Active Substance: FERROUS FUMARATE
  7. TYLENOL WITH CODEINE [Concomitant]
     Active Substance: ACETAMINOPHEN\CODEINE PHOSPHATE
  8. GLICLAZIDE [Concomitant]
     Active Substance: GLICLAZIDE
  9. OXAZEPAM. [Concomitant]
     Active Substance: OXAZEPAM
  10. SALBUTAMOL [Concomitant]
     Active Substance: ALBUTEROL
  11. METFORMIN/SITAGLIPTIN [Concomitant]
     Active Substance: METFORMIN\SITAGLIPTIN
  12. FENOFIBRATE. [Concomitant]
     Active Substance: FENOFIBRATE
  13. HYDROMORPHONE [Concomitant]
     Active Substance: HYDROMORPHONE
  14. FLUTICASONE PROPIONATE/SALMETEROL XINAFOATE [Concomitant]
     Active Substance: FLUTICASONE PROPIONATE\SALMETEROL XINAFOATE

REACTIONS (2)
  - Acute kidney injury [Unknown]
  - Diarrhoea [Unknown]
